FAERS Safety Report 8291172 (Version 6)
Quarter: 2014Q2

REPORT INFORMATION
  Report Type: Report from Study
  Country: US (occurrence: US)
  Receive Date: 20111122
  Receipt Date: 20140402
  Transmission Date: 20141212
  Serious: Yes (Other)
  Sender: FDA-Public Use
  Company Number: PHHY2011US16215

PATIENT
  Age: 61 Year
  Sex: Female
  Weight: 120 kg

DRUGS (13)
  1. GILENYA [Suspect]
     Indication: MULTIPLE SCLEROSIS
     Dosage: 0.5 MG, QD
     Route: 048
     Dates: start: 20110218
  2. GILENYA [Suspect]
     Dosage: 0.5 MG, BID
     Dates: start: 20110221, end: 20110222
  3. GILENYA [Suspect]
     Dosage: 0.5 MG, QD
     Route: 048
  4. SERTRALINE [Concomitant]
     Dosage: 100 MG, QD
     Route: 048
  5. PREMARIN [Concomitant]
     Dosage: 625 MG, QD
     Route: 048
  6. ZOCOR [Concomitant]
     Dosage: 40 MG, QD
     Route: 048
  7. BENZORATATE [Concomitant]
     Dosage: 100 MG, QD
     Route: 048
  8. SYNTHROID [Concomitant]
     Dosage: 77 UG, QD
     Route: 048
  9. RYNATAN [Concomitant]
     Dosage: UNK UKN, QD
     Route: 048
  10. DIFLUCAN [Concomitant]
     Dosage: 100 MG, UNK
     Route: 048
  11. ALLOPURINOL [Concomitant]
     Dosage: 100 MG, QD
     Route: 048
  12. TUSSIONEX [Concomitant]
     Dosage: UNK UKN, UNK
     Route: 048
  13. GAMMAGARD [Concomitant]
     Indication: LEUKAEMIA

REACTIONS (7)
  - Retinal tear [Not Recovered/Not Resolved]
  - Visual impairment [Not Recovered/Not Resolved]
  - Optic neuritis [Not Recovered/Not Resolved]
  - Vitreous floaters [Not Recovered/Not Resolved]
  - Memory impairment [Not Recovered/Not Resolved]
  - Rash [Recovered/Resolved]
  - Overdose [Unknown]
